FAERS Safety Report 17195654 (Version 1)
Quarter: 2019Q4

REPORT INFORMATION
  Report Type: Spontaneous
  Country: US (occurrence: US)
  Receive Date: 20191202
  Receipt Date: 20191202
  Transmission Date: 20200122
  Serious: Yes (Other)
  Sender: FDA-Public Use
  Company Number: None

PATIENT
  Age: 70 Year
  Sex: Female
  Weight: 70.31 kg

DRUGS (10)
  1. LEVOTHYROXINE. [Concomitant]
     Active Substance: LEVOTHYROXINE
  2. OMEPRAZOLE. [Concomitant]
     Active Substance: OMEPRAZOLE
  3. INHALER [Concomitant]
     Active Substance: UNSPECIFIED INGREDIENT
  4. BENZONATATE. [Suspect]
     Active Substance: BENZONATATE
     Indication: COUGH
     Dosage: ?          QUANTITY:1 DF DOSAGE FORM;OTHER FREQUENCY:3;?
     Route: 048
     Dates: start: 20191021, end: 20191022
  5. NOVOLOG [Concomitant]
     Active Substance: INSULIN ASPART
  6. RAMIPRIL. [Concomitant]
     Active Substance: RAMIPRIL
  7. LANTUS [Concomitant]
     Active Substance: INSULIN GLARGINE
  8. MULTIVITAMIN [Concomitant]
     Active Substance: VITAMINS
  9. CALCIUM [Concomitant]
     Active Substance: CALCIUM
  10. VICTOZA [Concomitant]
     Active Substance: LIRAGLUTIDE

REACTIONS (5)
  - Dyspnoea [None]
  - Pharyngeal hypoaesthesia [None]
  - Dysphagia [None]
  - Hypoaesthesia oral [None]
  - Fear [None]

NARRATIVE: CASE EVENT DATE: 20191021
